FAERS Safety Report 7318752-X (Version None)
Quarter: 2011Q1

REPORT INFORMATION
  Report Type: 
  Country: None (occurrence: None)
  Receive Date: 20110228
  Receipt Date: 20100609
  Transmission Date: 20110831
  Serious: No
  Sender: FDA-Public Use
  Company Number: A0849985A

PATIENT
  Age: 56 Year
  Sex: Female

DRUGS (4)
  1. VYTORIN [Concomitant]
  2. IMITREX [Suspect]
     Indication: MIGRAINE
     Dosage: 6MG AS REQUIRED
     Route: 058
     Dates: start: 19910101
  3. BUPROPION [Concomitant]
  4. IMITREX TABLETS [Concomitant]

REACTIONS (8)
  - INJECTION SITE HAEMORRHAGE [None]
  - INJECTION SITE PAIN [None]
  - INJECTION SITE ERYTHEMA [None]
  - INJECTION SITE URTICARIA [None]
  - FATIGUE [None]
  - PRODUCT QUALITY ISSUE [None]
  - PALPITATIONS [None]
  - INJECTION SITE SWELLING [None]
